FAERS Safety Report 13084476 (Version 3)
Quarter: 2017Q1

REPORT INFORMATION
  Report Type: Spontaneous
  Country: JP (occurrence: JP)
  Receive Date: 20170104
  Receipt Date: 20170215
  Transmission Date: 20170428
  Serious: Yes (Other)
  Sender: FDA-Public Use
  Company Number: JP-BAYER-2016-245694

PATIENT
  Age: 77 Year
  Sex: Male
  Weight: 60 kg

DRUGS (8)
  1. NEXAVAR [Suspect]
     Active Substance: SORAFENIB
     Indication: HEPATOCELLULAR CARCINOMA
     Dosage: DAILY DOSE 600 MG
     Route: 048
     Dates: start: 2016, end: 20161204
  2. GASCON [Concomitant]
     Active Substance: DIMETHICONE
     Indication: GASTRITIS
     Dosage: DAILY DOSE 120 MG
     Route: 048
  3. REFLEX [PICOLAMINE SALICYLATE] [Suspect]
     Active Substance: PICOLAMINE SALICYLATE
     Indication: INSOMNIA
     Dosage: DAILY DOSE 30 MG
     Route: 048
     Dates: start: 20160825
  4. SILECE [Suspect]
     Active Substance: FLUNITRAZEPAM
     Indication: INSOMNIA
     Dosage: DAILY DOSE 1 MG
     Route: 048
     Dates: start: 20161124
  5. FEBUXOSTAT. [Concomitant]
     Active Substance: FEBUXOSTAT
     Indication: HYPERURICAEMIA
     Dosage: DAILY DOSE 20 MG
     Route: 048
  6. ALOSENN [Concomitant]
     Active Substance: SENNA LEAF
     Indication: CONSTIPATION
     Dosage: DAILY DOSE 1 G
     Route: 048
  7. NEXAVAR [Suspect]
     Active Substance: SORAFENIB
     Indication: HEPATOCELLULAR CARCINOMA
     Dosage: 200 MG, BID
     Route: 048
     Dates: start: 20161024, end: 2016
  8. LUNESTA [Suspect]
     Active Substance: ESZOPICLONE
     Indication: INSOMNIA
     Dosage: DAILY DOSE 2 MG
     Route: 048
     Dates: start: 20160908

REACTIONS (8)
  - Cardiomegaly [Not Recovered/Not Resolved]
  - Oedema peripheral [Recovering/Resolving]
  - Ventricular extrasystoles [Recovering/Resolving]
  - Atrial fibrillation [Not Recovered/Not Resolved]
  - Dyspnoea exertional [Recovering/Resolving]
  - Cardiac failure [Recovering/Resolving]
  - Ascites [Recovering/Resolving]
  - Palpitations [Recovering/Resolving]

NARRATIVE: CASE EVENT DATE: 20161128
